FAERS Safety Report 9188470 (Version 2)
Quarter: 2013Q2

REPORT INFORMATION
  Report Type: Spontaneous
  Country: IT (occurrence: IT)
  Receive Date: 20130325
  Receipt Date: 20130628
  Transmission Date: 20140414
  Serious: Yes (Hospitalization)
  Sender: FDA-Public Use
  Company Number: PHHY2013IT027016

PATIENT
  Age: 86 Year
  Sex: Female

DRUGS (6)
  1. FUROSEMIDE [Suspect]
     Dosage: 25 MG, PER DAY
  2. FUROSEMIDE [Suspect]
     Dosage: 50 MG, PER DAY
  3. FUROSEMIDE [Suspect]
     Dosage: 40 MG, UNK
     Route: 042
  4. METHYLPREDNISOLONE [Suspect]
     Dosage: 20 MG, PER DAY
     Route: 030
  5. ACETYLCYSTEINE [Concomitant]
  6. CIPROFLOXACIN [Concomitant]
     Dosage: 500 MG, PER DAY

REACTIONS (9)
  - Cardiac failure [Recovering/Resolving]
  - Dyspnoea [Recovering/Resolving]
  - Hyperhidrosis [Recovering/Resolving]
  - Palpitations [Recovering/Resolving]
  - Cyanosis [Recovering/Resolving]
  - Pulmonary oedema [Recovering/Resolving]
  - Extrasystoles [Unknown]
  - Hypocalcaemia [Recovered/Resolved]
  - Cardiac murmur [Recovered/Resolved]
